FAERS Safety Report 23499539 (Version 1)
Quarter: 2024Q1

REPORT INFORMATION
  Report Type: Spontaneous
  Country: US (occurrence: None)
  Receive Date: 20240208
  Receipt Date: 20240208
  Transmission Date: 20240410
  Serious: Yes (Hospitalization)
  Sender: FDA-Public Use
  Company Number: None

PATIENT
  Sex: Female

DRUGS (3)
  1. PROLIA [Suspect]
     Active Substance: DENOSUMAB
     Indication: Rheumatoid arthritis
     Dosage: OTHER FREQUENCY : EVERY 6 MONTHS;?
     Route: 058
     Dates: start: 202007
  2. PROLIA [Suspect]
     Active Substance: DENOSUMAB
     Indication: Senile osteoporosis
  3. ORENClA CLICKJECT AUTOINJ [Concomitant]

REACTIONS (1)
  - Tumour haemorrhage [None]
